APPROVED DRUG PRODUCT: AMOXICILLIN AND CLAVULANATE POTASSIUM
Active Ingredient: AMOXICILLIN; CLAVULANATE POTASSIUM
Strength: 500MG;EQ 125MG BASE
Dosage Form/Route: TABLET;ORAL
Application: A065064 | Product #001 | TE Code: AB
Applicant: SANDOZ INC
Approved: Mar 15, 2002 | RLD: No | RS: No | Type: RX